FAERS Safety Report 9342642 (Version 2)
Quarter: 2013Q3

REPORT INFORMATION
  Report Type: Spontaneous
  Country: US (occurrence: US)
  Receive Date: 20130611
  Receipt Date: 20130725
  Transmission Date: 20140515
  Serious: No
  Sender: FDA-Public Use
  Company Number: US-PFIZER INC-2013172726

PATIENT
  Age: 56 Year
  Sex: Female
  Weight: 58.96 kg

DRUGS (2)
  1. DEPO-ESTRADIOL [Suspect]
     Indication: HOT FLUSH
     Dosage: 1.5 MG, EVERY 3-4 WEEKS
  2. SYNTHROID [Concomitant]
     Indication: THYROID DISORDER
     Dosage: 75 UG, 1X/DAY

REACTIONS (6)
  - Product quality issue [Unknown]
  - Drug ineffective [Unknown]
  - Malaise [Unknown]
  - Injection site pain [Unknown]
  - Influenza like illness [Unknown]
  - Myalgia [Unknown]
